FAERS Safety Report 5475393-7 (Version None)
Quarter: 2007Q4

REPORT INFORMATION
  Report Type: 
  Country: None (occurrence: None)
  Receive Date: 20071003
  Receipt Date: 20070928
  Transmission Date: 20080405
  Serious: Yes (Death)
  Sender: FDA-Public Use
  Company Number: PHHO2007CL16072

PATIENT
  Sex: Male

DRUGS (1)
  1. TAREG [Suspect]
     Dosage: 80 MG/DAILY
     Route: 048

REACTIONS (1)
  - DEATH [None]
